FAERS Safety Report 5005927-8 (Version None)
Quarter: 2006Q2

REPORT INFORMATION
  Report Type: 
  Country: None (occurrence: None)
  Receive Date: 20060517
  Receipt Date: 20060517
  Transmission Date: 20061013
  Serious: Yes (Other)
  Sender: FDA-Public Use
  Company Number: None

PATIENT
  Sex: Female
  Weight: 96.6162 kg

DRUGS (1)
  1. ORAL FLEET'S PHOSPHO-SODA [Suspect]
     Indication: PREOPERATIVE CARE
     Dates: start: 20020625, end: 20020626

REACTIONS (1)
  - RENAL FAILURE ACUTE [None]
